FAERS Safety Report 13554409 (Version 1)
Quarter: 2017Q2

REPORT INFORMATION
  Report Type: Spontaneous
  Country: DE (occurrence: DE)
  Receive Date: 20170517
  Receipt Date: 20170517
  Transmission Date: 20170830
  Serious: Yes (Other)
  Sender: FDA-Public Use
  Company Number: DE-TEVA-767326GER

PATIENT
  Age: 29 Year
  Sex: Female

DRUGS (1)
  1. COPAXONE [Suspect]
     Active Substance: GLATIRAMER ACETATE
     Indication: MULTIPLE SCLEROSIS
     Route: 058
     Dates: start: 2017, end: 2017

REACTIONS (6)
  - Urticaria [Unknown]
  - Swelling face [Unknown]
  - Anaphylactic shock [Unknown]
  - Erythema [Unknown]
  - Injection site urticaria [Unknown]
  - Rash pustular [Unknown]

NARRATIVE: CASE EVENT DATE: 2017
